FAERS Safety Report 13268083 (Version 1)
Quarter: 2017Q1

REPORT INFORMATION
  Report Type: Report from Study
  Country: CA (occurrence: CA)
  Receive Date: 20170224
  Receipt Date: 20170224
  Transmission Date: 20170428
  Serious: Yes (Hospitalization, Other)
  Sender: FDA-Public Use
  Company Number: CA-AMGEN-CANSL2017028146

PATIENT
  Age: 18 Year
  Sex: Female

DRUGS (7)
  1. CORTISONE [Suspect]
     Active Substance: CORTISONE\HYDROCORTISONE
     Indication: INJECTION SITE RASH
     Dosage: UNK
     Route: 061
  2. CORTISONE [Suspect]
     Active Substance: CORTISONE\HYDROCORTISONE
     Indication: INJECTION SITE SWELLING
  3. ENBREL [Suspect]
     Active Substance: ETANERCEPT
     Indication: ANKYLOSING SPONDYLITIS
     Dosage: 50 MG, UNK
     Route: 065
     Dates: start: 20170113
  4. CLARITIN [Suspect]
     Active Substance: LORATADINE
     Indication: INJECTION SITE ERYTHEMA
  5. CLARITIN [Suspect]
     Active Substance: LORATADINE
     Indication: INJECTION SITE SWELLING
  6. CORTISONE [Suspect]
     Active Substance: CORTISONE\HYDROCORTISONE
     Indication: INJECTION SITE ERYTHEMA
  7. CLARITIN [Suspect]
     Active Substance: LORATADINE
     Indication: INJECTION SITE RASH
     Dosage: UNK
     Route: 065

REACTIONS (4)
  - Anaphylactic shock [Unknown]
  - Injection site swelling [Unknown]
  - Injection site erythema [Unknown]
  - Injection site rash [Unknown]

NARRATIVE: CASE EVENT DATE: 2017
